FAERS Safety Report 4897810-3 (Version None)
Quarter: 2006Q1

REPORT INFORMATION
  Report Type: 
  Country: None (occurrence: None)
  Receive Date: 20060130
  Receipt Date: 20060130
  Transmission Date: 20060701
  Serious: Yes (Death)
  Sender: FDA-Public Use
  Company Number: None

PATIENT
  Sex: Female
  Weight: 62.7 kg

DRUGS (1)
  1. GEMCITABINE [Suspect]
     Indication: ADENOCARCINOMA PANCREAS
     Dosage: 1500 MG/M2 IV OVER 150 MIN. Q WK X3 EVERY 4 WEEKS  , 67680MG
     Route: 042
     Dates: start: 20051227

REACTIONS (1)
  - SUDDEN DEATH [None]
